FAERS Safety Report 15226076 (Version 9)
Quarter: 2020Q4

REPORT INFORMATION
  Report Type: Spontaneous
  Country: US (occurrence: US)
  Receive Date: 20180801
  Receipt Date: 20201015
  Transmission Date: 20210113
  Serious: Yes (Disabling, Other)
  Sender: FDA-Public Use
  Company Number: US-PFIZER INC-2018307210

PATIENT
  Age: 55 Year
  Sex: Female
  Weight: 86 kg

DRUGS (5)
  1. IBRANCE [Suspect]
     Active Substance: PALBOCICLIB
     Dosage: UNK
  2. IBRANCE [Suspect]
     Active Substance: PALBOCICLIB
     Indication: BREAST CANCER METASTATIC
     Dosage: 100 MG, CYCLIC (21D ON AND 7D OFF)
     Dates: start: 20161221
  3. IBRANCE [Suspect]
     Active Substance: PALBOCICLIB
     Dosage: 100 MG, CYCLIC (ONCE A DAY FOR 21 DAYS THEN 7 DAYS OFF)
     Route: 048
     Dates: start: 201711
  4. IBRANCE [Suspect]
     Active Substance: PALBOCICLIB
     Dosage: UNK
     Route: 048
  5. IBRANCE [Suspect]
     Active Substance: PALBOCICLIB
     Dosage: 125 MG
     Dates: start: 201710, end: 2017

REACTIONS (19)
  - Osteoarthritis [Unknown]
  - Stress [Unknown]
  - Weight decreased [Unknown]
  - Blood count abnormal [Unknown]
  - Second primary malignancy [Unknown]
  - Eating disorder [Unknown]
  - Mental disorder [Unknown]
  - Amnesia [Unknown]
  - Somnolence [Unknown]
  - Dysuria [Not Recovered/Not Resolved]
  - Cystitis [Not Recovered/Not Resolved]
  - Memory impairment [Not Recovered/Not Resolved]
  - Decreased appetite [Unknown]
  - Arthritis [Not Recovered/Not Resolved]
  - Spinal fracture [Recovering/Resolving]
  - Mental impairment [Unknown]
  - Bone cancer [Unknown]
  - Confusional state [Not Recovered/Not Resolved]
  - White blood cell count decreased [Not Recovered/Not Resolved]

NARRATIVE: CASE EVENT DATE: 201712
